FAERS Safety Report 15746291 (Version 1)
Quarter: 2018Q4

REPORT INFORMATION
  Report Type: Spontaneous
  Country: US (occurrence: US)
  Receive Date: 20181220
  Receipt Date: 20181220
  Transmission Date: 20190205
  Serious: Yes (Other)
  Sender: FDA-Public Use
  Company Number: US-TEVA-2018-US-987693

PATIENT
  Sex: Female

DRUGS (4)
  1. LAMOTRIGINE TABLET ZYDUS [Suspect]
     Active Substance: LAMOTRIGINE
     Route: 065
  2. TEGRETOL [Suspect]
     Active Substance: CARBAMAZEPINE
     Route: 065
  3. LAMOTRIGINE TABLET [Suspect]
     Active Substance: LAMOTRIGINE
     Dosage: 400 MILLIGRAM DAILY;
     Route: 065
  4. LAMOTRIGINE TABLET [Suspect]
     Active Substance: LAMOTRIGINE
     Route: 065
     Dates: start: 2014

REACTIONS (4)
  - Fall [Unknown]
  - Vision blurred [Unknown]
  - Dizziness [Unknown]
  - Diplopia [Unknown]

NARRATIVE: CASE EVENT DATE: 2008
